FAERS Safety Report 14022060 (Version 1)
Quarter: 2017Q3

REPORT INFORMATION
  Report Type: Spontaneous
  Country: FR (occurrence: FR)
  Receive Date: 20170928
  Receipt Date: 20170928
  Transmission Date: 20171128
  Serious: Yes (Other)
  Sender: FDA-Public Use
  Company Number: FR-SA-2017SA172898

PATIENT
  Age: 53 Year
  Sex: Female

DRUGS (13)
  1. SCOPODERM TTS [Suspect]
     Active Substance: SCOPOLAMINE
     Indication: DYSPHAGIA
     Route: 062
     Dates: start: 20170828, end: 20170831
  2. PANTOPRAZOLE SODIUM. [Suspect]
     Active Substance: PANTOPRAZOLE SODIUM
     Indication: ABDOMINAL PAIN UPPER
     Route: 042
     Dates: start: 20170828
  3. CYMEVAN [Suspect]
     Active Substance: GANCICLOVIR
     Indication: CYTOMEGALOVIRUS INFECTION
     Route: 042
     Dates: start: 20170829
  4. PANTOPRAZOLE SODIUM. [Suspect]
     Active Substance: PANTOPRAZOLE SODIUM
     Indication: ABDOMINAL PAIN UPPER
     Route: 042
     Dates: start: 20170831
  5. VITAMINS NOS [Concomitant]
     Active Substance: VITAMINS
     Indication: MALNUTRITION
  6. VITALIPIDE [Concomitant]
     Indication: MALNUTRITION
  7. TAZOBACTAM/PIPERACILLIN [Concomitant]
     Indication: PSEUDOMONAS INFECTION
     Route: 065
     Dates: start: 20170825
  8. NOVORAPID [Concomitant]
     Active Substance: INSULIN ASPART
  9. PHOCYTAN [Concomitant]
     Active Substance: .ALPHA.-GLUCOSE-1-PHOSPHATE
  10. ACICLOVIR [Suspect]
     Active Substance: ACYCLOVIR
     Route: 042
     Dates: start: 20170828
  11. VANCOMYCIN [Concomitant]
     Active Substance: VANCOMYCIN
  12. LOVENOX [Suspect]
     Active Substance: ENOXAPARIN SODIUM
     Indication: PROPHYLAXIS
     Route: 058
     Dates: start: 20170831
  13. OLIMEL [Concomitant]
     Active Substance: AMINO ACIDS\DEXTROSE\SOYBEAN OIL
     Indication: DIABETES MELLITUS MANAGEMENT

REACTIONS (3)
  - Seizure [Recovered/Resolved]
  - Agitation [Recovered/Resolved]
  - Aggression [Recovered/Resolved]

NARRATIVE: CASE EVENT DATE: 20170901
